FAERS Safety Report 12896372 (Version 1)
Quarter: 2016Q4

REPORT INFORMATION
  Report Type: Spontaneous
  Country: US (occurrence: US)
  Receive Date: 20161031
  Receipt Date: 20161031
  Transmission Date: 20170207
  Serious: No
  Sender: FDA-Public Use
  Company Number: US-JAZZ-2016-US-016518

PATIENT
  Sex: Female

DRUGS (33)
  1. PROVIGIL [Concomitant]
     Active Substance: MODAFINIL
  2. XYREM [Suspect]
     Active Substance: SODIUM OXYBATE
     Indication: NARCOLEPSY
     Dosage: 4.5 G, BID
     Route: 048
     Dates: start: 201012
  3. MUCINEX [Concomitant]
     Active Substance: GUAIFENESIN
  4. PROSCAR [Concomitant]
     Active Substance: FINASTERIDE
  5. CHROMIUM [Concomitant]
     Active Substance: CHROMIC CHLORIDE\CHROMIUM
  6. CYANOCOBALAMIN. [Concomitant]
     Active Substance: CYANOCOBALAMIN
  7. VITAMIN D3 [Concomitant]
     Active Substance: CHOLECALCIFEROL
  8. FLEXERIL [Concomitant]
     Active Substance: CYCLOBENZAPRINE HYDROCHLORIDE
  9. PHENTERMINE. [Concomitant]
     Active Substance: PHENTERMINE
  10. VYVANSE [Concomitant]
     Active Substance: LISDEXAMFETAMINE DIMESYLATE
  11. ASPIRIN. [Concomitant]
     Active Substance: ASPIRIN
  12. ALA [Concomitant]
  13. AMITRIPTYLINE HCL [Concomitant]
     Active Substance: AMITRIPTYLINE
  14. AMOXICILLIN. [Concomitant]
     Active Substance: AMOXICILLIN
  15. ZOFRAN [Concomitant]
     Active Substance: ONDANSETRON HYDROCHLORIDE
  16. FIORINAL [Concomitant]
     Active Substance: ASPIRIN\BUTALBITAL\CAFFEINE
  17. NIACIN. [Concomitant]
     Active Substance: NIACIN
  18. ALBUTEROL SULFATE. [Concomitant]
     Active Substance: ALBUTEROL SULFATE
  19. FLUCONAZOLE. [Concomitant]
     Active Substance: FLUCONAZOLE
  20. CYCLOBENZAPRINE [Concomitant]
     Active Substance: CYCLOBENZAPRINE
  21. CELEBREX [Concomitant]
     Active Substance: CELECOXIB
  22. CIPRO [Concomitant]
     Active Substance: CIPROFLOXACIN HYDROCHLORIDE
  23. ACETYL L-CARNITINE [Concomitant]
     Active Substance: ACETYLCARNITINE
  24. MEDROL [Concomitant]
     Active Substance: METHYLPREDNISOLONE
  25. PROGESTERONE. [Concomitant]
     Active Substance: PROGESTERONE
  26. ADDERALL [Concomitant]
     Active Substance: AMPHETAMINE ASPARTATE\AMPHETAMINE SULFATE\DEXTROAMPHETAMINE SACCHARATE\DEXTROAMPHETAMINE SULFATE
  27. NEURONTIN [Concomitant]
     Active Substance: GABAPENTIN
  28. UBIQUINOL [Concomitant]
     Active Substance: UBIQUINOL
  29. GABAPENTIN. [Suspect]
     Active Substance: GABAPENTIN
     Indication: PRODUCT USED FOR UNKNOWN INDICATION
  30. NEXIUM [Concomitant]
     Active Substance: ESOMEPRAZOLE MAGNESIUM
  31. PREVACID [Concomitant]
     Active Substance: LANSOPRAZOLE
  32. VYTORIN [Concomitant]
     Active Substance: EZETIMIBE\SIMVASTATIN
  33. VIVELLE-DOT [Concomitant]
     Active Substance: ESTRADIOL

REACTIONS (2)
  - Migraine [Unknown]
  - Drug ineffective [Unknown]
